FAERS Safety Report 17769245 (Version 1)
Quarter: 2020Q2

REPORT INFORMATION
  Report Type: Spontaneous
  Country: FR (occurrence: FR)
  Receive Date: 20200512
  Receipt Date: 20200512
  Transmission Date: 20200714
  Serious: Yes (Death, Life-Threatening)
  Sender: FDA-Public Use
  Company Number: FR-ABBVIE-20K-056-3398693-00

PATIENT
  Age: 71 Year
  Sex: Male

DRUGS (1)
  1. KALETRA [Suspect]
     Active Substance: LOPINAVIR\RITONAVIR
     Indication: CORONAVIRUS INFECTION
     Route: 048
     Dates: start: 20200417, end: 20200419

REACTIONS (2)
  - Bradycardia [Recovered/Resolved]
  - Coronavirus infection [Fatal]

NARRATIVE: CASE EVENT DATE: 2020
